FAERS Safety Report 4278928-5 (Version None)
Quarter: 2004Q1

REPORT INFORMATION
  Report Type: 
  Country: None (occurrence: None)
  Receive Date: 20040122
  Receipt Date: 20040113
  Transmission Date: 20041129
  Serious: Yes (Other)
  Sender: FDA-Public Use
  Company Number: HQ6081609JAN2003

PATIENT
  Age: 48 Year
  Sex: Male

DRUGS (2)
  1. RAPAMUNE [Suspect]
     Indication: GLOMERULONEPHRITIS CHRONIC
     Dosage: 5 MG 1 X PER 1 DAY, ORAL
     Route: 048
     Dates: start: 20020516, end: 20020601
  2. UNSEPCIFIED ANTIHYPERTENSIVE AGENT (UNSPECIFIED ANTIHYPERTENSIVE AGENT [Concomitant]

REACTIONS (4)
  - BLOOD POTASSIUM INCREASED [None]
  - DIALYSIS [None]
  - RENAL FAILURE CHRONIC [None]
  - RENAL TRANSPLANT [None]
